FAERS Safety Report 22212515 (Version 2)
Quarter: 2023Q2

REPORT INFORMATION
  Report Type: Report from Study
  Country: EG (occurrence: EG)
  Receive Date: 20230414
  Receipt Date: 20230605
  Transmission Date: 20230722
  Serious: Yes (Other)
  Sender: FDA-Public Use
  Company Number: EG-002147023-NVSC2023EG083774

PATIENT
  Age: 81 Year
  Sex: Male

DRUGS (3)
  1. ENTRESTO [Suspect]
     Active Substance: SACUBITRIL\VALSARTAN
     Indication: Cardiac failure
     Dosage: 100 MG, BID
     Route: 048
     Dates: start: 20221213, end: 20230406
  2. CINNARIZINE [Concomitant]
     Active Substance: CINNARIZINE
     Indication: Blood pressure abnormal
     Dosage: 2 DOSAGE FORM, QD (04 YEARS)
     Route: 048
  3. DILATROL [Concomitant]
     Indication: Blood pressure abnormal
     Dosage: 2 DOSAGE FORM, QD
     Route: 048
     Dates: start: 2016

REACTIONS (10)
  - Dyspnoea [Recovered/Resolved]
  - Blood creatinine increased [Recovered/Resolved]
  - Renal disorder [Recovered/Resolved]
  - Blood urea increased [Recovered/Resolved]
  - Blood uric acid increased [Recovered/Resolved]
  - Prothrombin time prolonged [Recovered/Resolved]
  - Blood thrombin increased [Recovered/Resolved]
  - Blood potassium increased [Recovered/Resolved]
  - Dizziness [Recovered/Resolved]
  - Back pain [Recovered/Resolved]

NARRATIVE: CASE EVENT DATE: 20230201
